FAERS Safety Report 21678406 (Version 1)
Quarter: 2022Q4

REPORT INFORMATION
  Report Type: Report from Study
  Country: ES (occurrence: ES)
  Receive Date: 20221203
  Receipt Date: 20221203
  Transmission Date: 20230112
  Serious: Yes (Hospitalization, Other)
  Sender: FDA-Public Use
  Company Number: ES-EMA-DD-20221116-216281-081832

PATIENT
  Age: 68 Year
  Sex: Female
  Weight: 59.3 kg

DRUGS (33)
  1. VINCRISTINE SULFATE [Suspect]
     Active Substance: VINCRISTINE SULFATE
     Indication: Diffuse large B-cell lymphoma
     Dosage: REGIMEN 1, 1.4 MILLIGRAM/SQ. METER,1Q3W, THERAPY END DATE : NASK
     Route: 065
     Dates: start: 20210916
  2. DOXORUBICIN HYDROCHLORIDE [Suspect]
     Active Substance: DOXORUBICIN HYDROCHLORIDE
     Indication: Diffuse large B-cell lymphoma
     Dosage: REGIMEN 1, 50 MILLIGRAM/SQ. METER,1Q3W, THERAPY END DATE : NASK
     Route: 065
     Dates: start: 20210916
  3. PREDNISONE [Suspect]
     Active Substance: PREDNISONE
     Indication: Diffuse large B-cell lymphoma stage IV
     Dosage: REGIMEN 1,100MG, QD(DAY 1 TO 5 FOR EACH 21-DAY CYCLE(CYCLE 1-6),FREQUENCY TIME:1 DAYS,DURATION:5DAYS
     Route: 065
     Dates: start: 20210917, end: 20210921
  4. PREDNISONE [Suspect]
     Active Substance: PREDNISONE
     Indication: Diffuse large B-cell lymphoma
     Dosage: 80 UNK, UNIT DOSE : 80 MG, DURATION : 1 DAYS
     Route: 065
     Dates: start: 20211102, end: 20211102
  5. PREDNISONE [Suspect]
     Active Substance: PREDNISONE
     Dosage: UNIT DOSE : 100 MG, DURATION : 4 DAYS
     Route: 065
     Dates: start: 20211211, end: 20211214
  6. PREDNISONE [Suspect]
     Active Substance: PREDNISONE
     Dosage: UNIT DOSE : 100 MG, DURATION : 39 DAYS
     Route: 065
     Dates: start: 20211106, end: 20211214
  7. PREDNISONE [Suspect]
     Active Substance: PREDNISONE
     Dosage: 100 MG, 1X/DAY (DAY 1 TO 5 FOR EACH 21-DAY CYCLE (CYCLE 1-6)), FREQUENCY TIME:1 DAYS,DURATION:6 DAYS
     Route: 065
     Dates: start: 20210916, end: 20210921
  8. PREDNISONE [Suspect]
     Active Substance: PREDNISONE
     Dosage: 100 MG, 1X/DAY (DAY 1 TO 5 FOR EACH 21-DAY CYCLE (CYCLE 1-6)),FREQUENCY TIME:1 DAYS,DURATION: 4 DAYS
     Route: 065
     Dates: start: 20211030, end: 20211102
  9. PREDNISONE [Suspect]
     Active Substance: PREDNISONE
     Dosage: 100 MG, 1X/DAY(DAY 1 TO 5 FOR EACH 21-DAY CYCLE (CYCLE 1-6)),FREQUENCY TIME:1 DAYS, DURATION: 5 DAYS
     Route: 065
     Dates: start: 20211008, end: 20211012
  10. METHYLPREDNISOLONE SODIUM SUCCINATE [Suspect]
     Active Substance: METHYLPREDNISOLONE SODIUM SUCCINATE
     Indication: Diffuse large B-cell lymphoma
     Dosage: 80 MG, SINGLE, DURATION : 1 DAYS
     Route: 065
     Dates: start: 20210916, end: 20210916
  11. METHYLPREDNISOLONE SODIUM SUCCINATE [Suspect]
     Active Substance: METHYLPREDNISOLONE SODIUM SUCCINATE
     Dosage: 80 MG, SINGLE, DURATION : 1 DAYS
     Route: 065
     Dates: start: 20211119, end: 20211119
  12. METHYLPREDNISOLONE SODIUM SUCCINATE [Suspect]
     Active Substance: METHYLPREDNISOLONE SODIUM SUCCINATE
     Dosage: 100 MG, SINGLE, DURATION : 1 DAYS
     Route: 065
     Dates: start: 20210930, end: 20210930
  13. METHYLPREDNISOLONE SODIUM SUCCINATE [Suspect]
     Active Substance: METHYLPREDNISOLONE SODIUM SUCCINATE
     Dosage: 80 MG, SINGLE, DURATION : 337 DAYS
     Route: 065
     Dates: start: 20211210, end: 20211213
  14. METHYLPREDNISOLONE SODIUM SUCCINATE [Suspect]
     Active Substance: METHYLPREDNISOLONE SODIUM SUCCINATE
     Dosage: 80 MG, SINGLE, DURATION : 1 DAYS
     Route: 065
     Dates: start: 20211126, end: 20211126
  15. CYCLOPHOSPHAMIDE [Suspect]
     Active Substance: CYCLOPHOSPHAMIDE
     Indication: Diffuse large B-cell lymphoma
     Dosage: 750 MG/M2, EVERY 3 WEEKS, THERAPY END DATE : NASK
     Route: 065
     Dates: start: 20210916
  16. EPCORITAMAB [Suspect]
     Active Substance: EPCORITAMAB
     Indication: Diffuse large B-cell lymphoma
     Dosage: 48 MG, WEEKLY (FULL DOSE), DURATION : 58 DAYS
     Route: 065
     Dates: start: 20210930, end: 20211126
  17. EPCORITAMAB [Suspect]
     Active Substance: EPCORITAMAB
     Dosage: 0.8 MG (INTERMEDIATE DOSE), UNIT DOSE : 0.8 MG, DURATION : 1 DAYS
     Route: 065
     Dates: start: 20210923, end: 20210923
  18. EPCORITAMAB [Suspect]
     Active Substance: EPCORITAMAB
     Dosage: 0.16 MG (PRIMING DOSE), UNIT DOSE : 0.16 MG, DURATION : 1 DAYS
     Route: 065
     Dates: start: 20210916, end: 20210916
  19. EPCORITAMAB [Suspect]
     Active Substance: EPCORITAMAB
     Dosage: 48 MG(FULL DOSE) (CYCLE 5 (C5D1)), UNIT DOSE : 48 MG,FREQUENCY TIME :3 WEEKS, THERAPY END DATE :NASK
     Route: 065
     Dates: start: 20211210
  20. RITUXIMAB [Suspect]
     Active Substance: RITUXIMAB
     Indication: Diffuse large B-cell lymphoma stage IV
     Dosage: 375 MG/M2, EVERY 3 WEEKS, THERAPY END DATE : NASK
     Route: 065
     Dates: start: 20210916
  21. PREGABALIN [Concomitant]
     Active Substance: PREGABALIN
     Indication: Product used for unknown indication
     Dosage: UNK
     Route: 065
     Dates: start: 20210823
  22. ALLOPURINOL [Concomitant]
     Active Substance: ALLOPURINOL
     Indication: Product used for unknown indication
     Dosage: UNK
     Route: 065
     Dates: start: 20211108
  23. FENTANYL [Concomitant]
     Active Substance: FENTANYL
     Indication: Product used for unknown indication
     Dosage: UNK, DURATION : 116 DAYS
     Route: 065
     Dates: start: 20210820, end: 20211213
  24. FENTANYL [Concomitant]
     Active Substance: FENTANYL
     Dosage: UNK, ROUTE OF ADMINISTRATION : UNKNOWN ROUTE, DURATION : 204 DAYS
     Route: 065
     Dates: start: 20210820, end: 20220311
  25. OMEPRAZOLE [Concomitant]
     Active Substance: OMEPRAZOLE
     Indication: Product used for unknown indication
     Dosage: UNK
     Route: 065
     Dates: start: 20210822
  26. MAGNESIUM [Concomitant]
     Active Substance: MAGNESIUM
     Indication: Product used for unknown indication
     Dosage: UNK
     Route: 065
     Dates: start: 20210929
  27. CALCIUM CARBONATE [Concomitant]
     Active Substance: CALCIUM CARBONATE
     Indication: Product used for unknown indication
     Dosage: UNK
     Route: 065
     Dates: start: 20211115
  28. AMITRIPTYLINE [Concomitant]
     Active Substance: AMITRIPTYLINE
     Indication: Product used for unknown indication
     Dosage: UNK
     Route: 065
     Dates: start: 2021
  29. ACETAMINOPHEN [Concomitant]
     Active Substance: ACETAMINOPHEN
     Indication: Product used for unknown indication
     Dosage: 1 G, DURATION : 1DAYS
     Route: 065
     Dates: start: 20211210, end: 20211210
  30. BEMIPARIN [Concomitant]
     Active Substance: BEMIPARIN
     Indication: Product used for unknown indication
     Dosage: UNK
     Route: 065
     Dates: start: 20210821
  31. SULFAMETHOXAZOLE\TRIMETHOPRIM [Concomitant]
     Active Substance: SULFAMETHOXAZOLE\TRIMETHOPRIM
     Indication: Product used for unknown indication
     Dosage: UNK
     Route: 065
     Dates: start: 20210830
  32. DEXCHLORPHENIRAMINE [Concomitant]
     Active Substance: DEXCHLORPHENIRAMINE
     Indication: Product used for unknown indication
     Dosage: 5 MG, DURATION : 1 DAYS
     Route: 065
     Dates: start: 20211210, end: 20211210
  33. GRANULOCYTE COLONY-STIMULATING FACTOR NOS [Concomitant]
     Active Substance: GRANULOCYTE COLONY-STIMULATING FACTOR NOS
     Indication: Product used for unknown indication
     Dosage: UNK, DURATION : 4 DAYS
     Route: 065
     Dates: start: 20211210, end: 20211213

REACTIONS (11)
  - Gastroenteritis [Unknown]
  - Febrile neutropenia [Recovered/Resolved]
  - Spinal fracture [Recovered/Resolved]
  - Paraesthesia [Unknown]
  - Thrombocytopenia [Unknown]
  - Immune effector cell-associated neurotoxicity syndrome [Recovered/Resolved]
  - Diarrhoea [Unknown]
  - Somnolence [Unknown]
  - Immune effector cell-associated neurotoxicity syndrome [Unknown]
  - Haemoglobin decreased [Unknown]
  - C-reactive protein increased [Unknown]

NARRATIVE: CASE EVENT DATE: 20211001
